FAERS Safety Report 23301574 (Version 7)
Quarter: 2025Q2

REPORT INFORMATION
  Report Type: Report from Study
  Country: CA (occurrence: CA)
  Receive Date: 20231215
  Receipt Date: 20250607
  Transmission Date: 20250716
  Serious: Yes (Hospitalization)
  Sender: TAKEDA
  Company Number: CA-TAKEDA-2023TUS119726

PATIENT
  Sex: Female

DRUGS (18)
  1. ICATIBANT [Suspect]
     Active Substance: ICATIBANT ACETATE
     Indication: Hereditary angioedema
  2. ICATIBANT [Suspect]
     Active Substance: ICATIBANT ACETATE
  3. ICATIBANT [Suspect]
     Active Substance: ICATIBANT ACETATE
  4. ICATIBANT [Suspect]
     Active Substance: ICATIBANT ACETATE
  5. ICATIBANT [Suspect]
     Active Substance: ICATIBANT ACETATE
  6. BOTOX [Concomitant]
     Active Substance: ONABOTULINUMTOXINA
  7. VENTOLIN [Concomitant]
     Active Substance: ALBUTEROL SULFATE
  8. SYMBICORT [Concomitant]
     Active Substance: BUDESONIDE\FORMOTEROL FUMARATE DIHYDRATE
  9. ALIGN [Concomitant]
     Active Substance: BIFIDOBACTERIUM LONGUM SUBSP. INFANTIS
  10. RISEDRONATE SODIUM [Concomitant]
     Active Substance: RISEDRONATE SODIUM
  11. DOMPERIDONE [Concomitant]
     Active Substance: DOMPERIDONE
  12. PANTOPRAZOLE [Concomitant]
     Active Substance: PANTOPRAZOLE
  13. RANITIDINE [Concomitant]
     Active Substance: RANITIDINE
  14. Reactine [Concomitant]
  15. CROMOLYN SODIUM [Concomitant]
     Active Substance: CROMOLYN SODIUM
  16. MONTELUKAST [Concomitant]
     Active Substance: MONTELUKAST
  17. EPIPEN [Concomitant]
     Active Substance: EPINEPHRINE
  18. HELIOX [Concomitant]
     Active Substance: OXYGEN

REACTIONS (4)
  - Dyspnoea [Unknown]
  - Paraesthesia oral [Unknown]
  - Oral discomfort [Unknown]
  - Device difficult to use [Unknown]
